FAERS Safety Report 21205904 (Version 2)
Quarter: 2022Q4

REPORT INFORMATION
  Report Type: Spontaneous
  Country: FR (occurrence: FR)
  Receive Date: 20220812
  Receipt Date: 20221227
  Transmission Date: 20230113
  Serious: Yes (Hospitalization, Other)
  Sender: FDA-Public Use
  Company Number: FR-AFSSAPS-SE20220830

PATIENT
  Age: 24 Year
  Sex: Male
  Weight: 85 kg

DRUGS (5)
  1. LOVENOX [Suspect]
     Active Substance: ENOXAPARIN SODIUM
     Indication: Thrombosis prophylaxis
     Dosage: 10 MG QD
     Route: 058
     Dates: start: 20220713, end: 20220726
  2. PANTOPRAZOLE SODIUM [Suspect]
     Active Substance: PANTOPRAZOLE SODIUM
     Indication: Stress ulcer
     Dosage: 20 MG ;QD
     Route: 048
     Dates: start: 20220708
  3. METRONIDAZOLE [Concomitant]
     Active Substance: METRONIDAZOLE
     Indication: Liver abscess
     Dosage: 1500 MG ; QD
     Route: 048
     Dates: start: 20220713, end: 20220723
  4. PREDNISOLONE SODIUM METAZOATE [Concomitant]
     Active Substance: PREDNISOLONE SODIUM METAZOATE
     Dosage: 20 MG QD
     Route: 048
     Dates: start: 20220713
  5. CLINDAMYCIN HYDROCHLORIDE [Concomitant]
     Active Substance: CLINDAMYCIN HYDROCHLORIDE
     Dosage: 2.4 G, QD
     Dates: start: 20220723, end: 20220726

REACTIONS (1)
  - Hepatic cytolysis [Recovered/Resolved]

NARRATIVE: CASE EVENT DATE: 20220719
